FAERS Safety Report 15029469 (Version 1)
Quarter: 2018Q2

REPORT INFORMATION
  Report Type: Other
  Country: US (occurrence: US)
  Receive Date: 20180619
  Receipt Date: 20180619
  Transmission Date: 20180711
  Serious: Yes (Other)
  Sender: FDA-Public Use
  Company Number: US-SAREPTA THERAPEUTICS, INC-SRP-000097-2018

PATIENT
  Sex: Male

DRUGS (1)
  1. EXONDYS 51 [Suspect]
     Active Substance: ETEPLIRSEN
     Indication: DUCHENNE MUSCULAR DYSTROPHY
     Dosage: UNK
     Route: 065

REACTIONS (4)
  - Drug dose omission [Unknown]
  - Syncope [Recovered/Resolved]
  - Back pain [Recovered/Resolved]
  - Loss of control of legs [Recovered/Resolved]
